FAERS Safety Report 6517287-1 (Version None)
Quarter: 2009Q4

REPORT INFORMATION
  Report Type: 
  Country: None (occurrence: None)
  Receive Date: 20091218
  Receipt Date: 20091213
  Transmission Date: 20100525
  Serious: Yes (Other)
  Sender: FDA-Public Use
  Company Number: 2009029686

PATIENT
  Age: 62 Year
  Sex: Female
  Weight: 64.4108 kg

DRUGS (13)
  1. NUVIGIL [Suspect]
     Indication: FEELING ABNORMAL
     Dosage: 150 MG (150 MG, 1 IN 1 D), ORAL
     Route: 048
     Dates: start: 20091125, end: 20091127
  2. ENTEX LA (GUAIFENESIN, PHENYLPROPANOLAMINE HYDROCHLORIDE) [Concomitant]
  3. MENEST [Concomitant]
  4. ADDERALL XL (DEXAMFETAMINE SULFATE, AMFETAMINE SULFATE, DEXAMFETAMINE [Concomitant]
  5. WELLBUTRIN XR (BUPROPION) [Concomitant]
  6. XANAX [Concomitant]
  7. ACIPHEX [Concomitant]
  8. AMBIEN [Concomitant]
  9. ZYRTEC [Concomitant]
  10. BENADRYL [Concomitant]
  11. TRIAMCINOLONE [Concomitant]
  12. CLOBETASOL PROPIONATE [Concomitant]
  13. SUPPLEMENTS (VITAMINS NOC, MINERALS NOS) [Concomitant]

REACTIONS (9)
  - ACNE [None]
  - BLISTER [None]
  - CHILLS [None]
  - ERYTHEMA [None]
  - EYE IRRITATION [None]
  - HEAT RASH [None]
  - PRURITUS [None]
  - SCAB [None]
  - SKIN EXFOLIATION [None]
